FAERS Safety Report 15810997 (Version 1)
Quarter: 2019Q1

REPORT INFORMATION
  Report Type: Spontaneous
  Country: KR (occurrence: KR)
  Receive Date: 20190111
  Receipt Date: 20190111
  Transmission Date: 20190417
  Serious: Yes (Other)
  Sender: FDA-Public Use
  Company Number: KR-STRIDES ARCOLAB LIMITED-2019SP000380

PATIENT
  Age: 86 Year
  Sex: Male

DRUGS (2)
  1. VANCOMYCIN [Suspect]
     Active Substance: VANCOMYCIN
     Indication: PROPHYLAXIS
     Dosage: 10 MG, (500 MG BALANCED SALT SOLUTION)
     Route: 047
  2. VANCOMYCIN [Suspect]
     Active Substance: VANCOMYCIN
     Indication: ENDOPHTHALMITIS

REACTIONS (5)
  - Retinal vasculitis [Recovered/Resolved]
  - Retinal haemorrhage [Recovered/Resolved]
  - Blindness [Recovered/Resolved]
  - Corneal oedema [Recovered/Resolved]
  - Retinal vascular occlusion [Recovered/Resolved]
